FAERS Safety Report 9960200 (Version 1)
Quarter: 2014Q1

REPORT INFORMATION
  Report Type: Spontaneous
  Country: US (occurrence: None)
  Receive Date: 20140228
  Receipt Date: 20140228
  Transmission Date: 20141002
  Serious: Yes (Hospitalization)
  Sender: FDA-Public Use
  Company Number: None

PATIENT
  Age: 80 Year
  Sex: Female
  Weight: 66.8 kg

DRUGS (2)
  1. EVISTA 60 MG [Suspect]
     Indication: OSTEOPOROSIS
     Dosage: 1 PILL QD ORAL
     Route: 048
  2. COUMADIN [Concomitant]

REACTIONS (4)
  - Local swelling [None]
  - Pain in extremity [None]
  - Deep vein thrombosis [None]
  - Deep vein thrombosis [None]
